FAERS Safety Report 9870747 (Version 1)
Quarter: 2014Q1

REPORT INFORMATION
  Report Type: Spontaneous
  Country: US (occurrence: None)
  Receive Date: 20140131
  Receipt Date: 20140131
  Transmission Date: 20141002
  Serious: Yes (Death)
  Sender: FDA-Public Use
  Company Number: IMP_06977_2014

PATIENT
  Age: 25 Year
  Sex: Female

DRUGS (5)
  1. CHLOROQUINE [Suspect]
     Dosage: DF, ORAL
     Route: 048
  2. ALPRAZOLAM [Suspect]
     Dosage: DF, ORAL
     Route: 048
  3. ZOLPIDEM [Suspect]
     Dosage: DF ORAL
     Route: 048
  4. DIPHENHYDRAMINE [Suspect]
     Dosage: DF ORAL
     Route: 048
  5. MIRTAZAPINE [Suspect]
     Dosage: DF ORAL

REACTIONS (2)
  - Poisoning [None]
  - Completed suicide [None]
